FAERS Safety Report 4842466-9 (Version None)
Quarter: 2005Q4

REPORT INFORMATION
  Report Type: 
  Country: None (occurrence: None)
  Receive Date: 20051129
  Receipt Date: 20051110
  Transmission Date: 20060501
  Serious: Yes (Hospitalization, Other)
  Sender: FDA-Public Use
  Company Number: US200511000071

PATIENT
  Age: 81 Year
  Sex: Female

DRUGS (1)
  1. HUMATROPE [Suspect]
     Indication: LABORATORY TEST ABNORMAL
     Dosage: 0.4 MG, DAILY (1/D)
     Dates: start: 20040922, end: 20041001

REACTIONS (7)
  - CEREBROVASCULAR ACCIDENT [None]
  - CONFUSIONAL STATE [None]
  - INCORRECT DOSE ADMINISTERED [None]
  - MYOCARDIAL INFARCTION [None]
  - PERICARDIAL EFFUSION [None]
  - PNEUMONIA [None]
  - PULMONARY OEDEMA [None]
